FAERS Safety Report 6752449-X (Version None)
Quarter: 2010Q2

REPORT INFORMATION
  Report Type: 
  Country: None (occurrence: None)
  Receive Date: 20100601
  Receipt Date: 20100601
  Transmission Date: 20101027
  Serious: Yes (Hospitalization)
  Sender: FDA-Public Use
  Company Number: None

PATIENT
  Age: 58 Year
  Sex: Female
  Weight: 68.0396 kg

DRUGS (1)
  1. ACTONEL [Suspect]
     Indication: OSTEOPENIA
     Dosage: 1 PILL ONCE A MONTH PO
     Route: 048
     Dates: start: 20000116, end: 20100228

REACTIONS (5)
  - FALL [None]
  - FEMUR FRACTURE [None]
  - FRACTURE DISPLACEMENT [None]
  - IMPAIRED WORK ABILITY [None]
  - SOFT TISSUE INJURY [None]
